FAERS Safety Report 6202379-7 (Version None)
Quarter: 2009Q2

REPORT INFORMATION
  Report Type: 
  Country: None (occurrence: None)
  Receive Date: 20090521
  Receipt Date: 20090521
  Transmission Date: 20091009
  Serious: Yes (Disabling, Other)
  Sender: FDA-Public Use
  Company Number: None

PATIENT
  Sex: Male
  Weight: 58.9676 kg

DRUGS (1)
  1. LUPRON [Suspect]
     Indication: PROSTATE CANCER
     Dosage: 3.75 MGM Q 3 MONTHS I.M.
     Route: 030
     Dates: start: 20070101, end: 20081001

REACTIONS (3)
  - ASTHENIA [None]
  - FALL [None]
  - JOINT DISLOCATION [None]
